FAERS Safety Report 13682813 (Version 1)
Quarter: 2017Q2

REPORT INFORMATION
  Report Type: Spontaneous
  Country: US (occurrence: US)
  Receive Date: 20170623
  Receipt Date: 20170623
  Transmission Date: 20170830
  Serious: No
  Sender: FDA-Public Use
  Company Number: US-MALLINCKRODT-T201606722

PATIENT
  Sex: Male

DRUGS (13)
  1. H.P. ACTHAR [Suspect]
     Active Substance: CORTICOTROPIN
     Indication: NEPHROTIC SYNDROME
     Dosage: USE AS DIRECTED BY PHYISICIAN
     Route: 065
     Dates: start: 20160517, end: 20161213
  2. CIPROFLOXACIN. [Concomitant]
     Active Substance: CIPROFLOXACIN
     Dosage: 250 MG TAB
  3. PREZISTA [Concomitant]
     Active Substance: DARUNAVIR ETHANOLATE
     Dosage: 600 MG TAB
  4. ENTECAVIR. [Concomitant]
     Active Substance: ENTECAVIR
     Dosage: 0.5 MG TAB
  5. LISINOPRIL. [Concomitant]
     Active Substance: LISINOPRIL
     Dosage: 5 MG TAB
  6. FUROSEMIDE. [Concomitant]
     Active Substance: FUROSEMIDE
     Dosage: 40 MG TAB
  7. PREDNISONE. [Concomitant]
     Active Substance: PREDNISONE
     Dosage: 200 MG TAB
  8. DOXYCYCLINE HCL [Concomitant]
     Active Substance: DOXYCYCLINE HYDROCHLORIDE
     Dosage: 100 MG CAP
  9. ISENTRESS [Concomitant]
     Active Substance: RALTEGRAVIR POTASSIUM
     Dosage: 400 MG
  10. LEVOFLOXACIN. [Concomitant]
     Active Substance: LEVOFLOXACIN
     Dosage: 500 MG TAB
  11. NORVIR [Concomitant]
     Active Substance: RITONAVIR
     Dosage: 100 MG CAP
  12. NOVOLIN N [Concomitant]
     Active Substance: INSULIN HUMAN
     Dosage: 100 INJ
  13. DAPSONE. [Concomitant]
     Active Substance: DAPSONE
     Dosage: 1000 MG TAB

REACTIONS (2)
  - Hiccups [Not Recovered/Not Resolved]
  - Choking [Not Recovered/Not Resolved]
